FAERS Safety Report 22366704 (Version 1)
Quarter: 2023Q2

REPORT INFORMATION
  Report Type: Spontaneous
  Country: ES (occurrence: ES)
  Receive Date: 20230525
  Receipt Date: 20230525
  Transmission Date: 20230721
  Serious: Yes (Other)
  Sender: FDA-Public Use
  Company Number: ES-GLAXOSMITHKLINE-ES2023EME065755

PATIENT
  Sex: Female

DRUGS (8)
  1. EZETIMIBE [Suspect]
     Active Substance: EZETIMIBE
     Indication: Product used for unknown indication
     Dosage: UNK
  2. VESICARE [Suspect]
     Active Substance: SOLIFENACIN SUCCINATE
     Indication: Urinary incontinence
     Dosage: UNK
  3. NAPROXEN [Suspect]
     Active Substance: NAPROXEN
     Indication: Product used for unknown indication
     Dosage: UNK
  4. BUPROPION HYDROCHLORIDE [Suspect]
     Active Substance: BUPROPION HYDROCHLORIDE
     Indication: Product used for unknown indication
     Dosage: UNK
  5. OMEPRAZOLE [Suspect]
     Active Substance: OMEPRAZOLE
     Indication: Product used for unknown indication
     Dosage: UNK
  6. DIAZEPAM [Suspect]
     Active Substance: DIAZEPAM
     Indication: Product used for unknown indication
     Dosage: 5 MG, BID (1 IN THE MORNING AND 1 AT NIGHT)
  7. QUETIAPINE [Suspect]
     Active Substance: QUETIAPINE
     Indication: Product used for unknown indication
     Dosage: UNK
  8. RIVOTRIL [Suspect]
     Active Substance: CLONAZEPAM
     Indication: Product used for unknown indication
     Dosage: UNK

REACTIONS (21)
  - Impaired work ability [Unknown]
  - Respiratory tract infection viral [Unknown]
  - Idiopathic environmental intolerance [Unknown]
  - Fatigue [Unknown]
  - Insomnia [Unknown]
  - Ligament injury [Unknown]
  - Chills [Unknown]
  - Fibromyalgia [Unknown]
  - Pneumonia [Unknown]
  - Labelled drug-drug interaction issue [Unknown]
  - Fall [Unknown]
  - Pneumothorax [Unknown]
  - Choking [Unknown]
  - Temperature regulation disorder [Unknown]
  - Fatigue [Unknown]
  - Drug abuse [Unknown]
  - Radius fracture [Unknown]
  - Amnesia [Unknown]
  - Constipation [Unknown]
  - Dysgraphia [Unknown]
  - Corrective lens user [Unknown]
